FAERS Safety Report 6453774-2 (Version None)
Quarter: 2009Q4

REPORT INFORMATION
  Report Type: 
  Country: None (occurrence: None)
  Receive Date: 20091123
  Receipt Date: 20091123
  Transmission Date: 20100525
  Serious: Yes (Other)
  Sender: FDA-Public Use
  Company Number: None

PATIENT
  Age: 31 Year
  Sex: Female
  Weight: 58.0604 kg

DRUGS (2)
  1. CIPROFLOXACIN HCL [Suspect]
     Indication: CYSTITIS
     Dosage: 1 TABLET 2X DAILY PO
     Route: 048
     Dates: start: 20091027, end: 20091106
  2. CIPROFLOXACIN HCL [Suspect]
     Indication: MYRINGOTOMY
     Dosage: 1 TABLET 2X DAILY PO
     Route: 048
     Dates: start: 20091119, end: 20091120

REACTIONS (10)
  - ABDOMINAL PAIN UPPER [None]
  - BURNING SENSATION [None]
  - DISORIENTATION [None]
  - DIZZINESS [None]
  - EXTRAPYRAMIDAL DISORDER [None]
  - HYPOAESTHESIA [None]
  - OBSTRUCTIVE AIRWAYS DISORDER [None]
  - PRURITUS [None]
  - SWELLING FACE [None]
  - SWOLLEN TONGUE [None]
